FAERS Safety Report 17796325 (Version 1)
Quarter: 2020Q2

REPORT INFORMATION
  Report Type: Report from Study
  Country: None (occurrence: ZA)
  Receive Date: 20200517
  Receipt Date: 20200517
  Transmission Date: 20200714
  Serious: Yes (Hospitalization)
  Sender: FDA-Public Use
  Company Number: ZA-ABBVIE-20K-143-3405413-00

PATIENT
  Sex: Male

DRUGS (3)
  1. HUMIRA [Suspect]
     Active Substance: ADALIMUMAB
     Dosage: 160 MG STAT, 80 MG 2 WEEKS LATER, THEN 40 MG EVERY OTHER WEEK
     Route: 058
     Dates: start: 2017
  2. HUMIRA [Suspect]
     Active Substance: ADALIMUMAB
     Dosage: 160 MG STAT, 80 MG 2 WEEKS LATER, THEN 40 MG EVERY OTHER WEEK
     Route: 058
     Dates: start: 20170213, end: 20170213
  3. HUMIRA [Suspect]
     Active Substance: ADALIMUMAB
     Indication: CROHN^S DISEASE
     Dosage: 160 MG STAT, 80 MG 2 WEEKS LATER, THEN 40 MG EVERY OTHER WEEK
     Route: 058
     Dates: start: 20170130, end: 20170130

REACTIONS (2)
  - Malaise [Not Recovered/Not Resolved]
  - Renal failure [Not Recovered/Not Resolved]
